FAERS Safety Report 13381089 (Version 3)
Quarter: 2017Q2

REPORT INFORMATION
  Report Type: Report from Study
  Country: KR (occurrence: KR)
  Receive Date: 20170329
  Receipt Date: 20170411
  Transmission Date: 20170830
  Serious: Yes (Hospitalization)
  Sender: FDA-Public Use
  Company Number: KR-ROCHE-1911905

PATIENT
  Age: 60 Year
  Sex: Male
  Weight: 68.65 kg

DRUGS (9)
  1. PHENIRAMINE [Concomitant]
     Active Substance: PHENIRAMINE
     Indication: PROPHYLAXIS
     Route: 042
     Dates: start: 20161205
  2. INHIBACE [Concomitant]
     Active Substance: CILAZAPRIL ANHYDROUS
     Indication: HYPERTENSION
     Route: 048
     Dates: start: 20170206
  3. CINALONG [Concomitant]
     Indication: HYPERTENSION
     Route: 048
     Dates: start: 20170206
  4. RANITIDINE HCL [Concomitant]
     Active Substance: RANITIDINE HYDROCHLORIDE
     Indication: MYALGIA
     Route: 048
     Dates: start: 20160810
  5. TARGIN [Concomitant]
     Active Substance: NALOXONE HYDROCHLORIDE\OXYCODONE HYDROCHLORIDE
     Indication: MYALGIA
     Dosage: 20/10 MG TABLETS
     Route: 048
  6. LYRICA [Concomitant]
     Active Substance: PREGABALIN
     Indication: MYALGIA
     Route: 048
     Dates: start: 20160323
  7. TRAMADOL HCL [Concomitant]
     Active Substance: TRAMADOL HYDROCHLORIDE
     Indication: MYALGIA
     Route: 048
     Dates: start: 20160810
  8. ATEZOLIZUMAB [Suspect]
     Active Substance: ATEZOLIZUMAB
     Indication: RENAL CELL CARCINOMA
     Dosage: THE MOST RECENT DOSE OF ATEZOLIZUMAB 1200 MG PRIOR TO THE EVENT ONSET WAS ON 27/FEB/2017.
     Route: 042
     Dates: start: 20160307
  9. BEVACIZUMAB [Suspect]
     Active Substance: BEVACIZUMAB
     Indication: RENAL CELL CARCINOMA
     Dosage: THE MOST RECENT DOSE OF BEVACIZUMAB 1029.75 MG PRIOR TO THE EVENT WAS ON 27/FEB/2017
     Route: 042
     Dates: start: 20160307

REACTIONS (1)
  - Myalgia [Recovered/Resolved with Sequelae]

NARRATIVE: CASE EVENT DATE: 20170322
